FAERS Safety Report 6992907-6 (Version None)
Quarter: 2010Q3

REPORT INFORMATION
  Report Type: 
  Country: None (occurrence: None)
  Receive Date: 20100917
  Receipt Date: 20100907
  Transmission Date: 20110219
  Serious: Yes (Other)
  Sender: FDA-Public Use
  Company Number: US-PFIZER INC-2010090434

PATIENT
  Sex: Male

DRUGS (11)
  1. DILANTIN-125 [Suspect]
     Indication: CONVULSION
     Dosage: 400 MG, DAILY
  2. DILANTIN-125 [Suspect]
     Dosage: 300 MG, DAILY
     Dates: start: 20080901
  3. NEURONTIN [Suspect]
     Indication: NEUROPATHY PERIPHERAL
     Dosage: 600 MG, 1X/DAY
  4. NEURONTIN [Suspect]
     Dosage: 600 MG, 3X/DAY
  5. NEURONTIN [Suspect]
     Dosage: 600 MG 2X/DAY, 900MG AT NIGHT
  6. PHENYTOIN [Suspect]
     Indication: CONVULSION
     Dosage: 400 MG, DAILY
  7. LYRICA [Concomitant]
     Indication: NEUROPATHY PERIPHERAL
     Dosage: 150 MG, 2X/DAY
  8. LYRICA [Concomitant]
     Dosage: UNK
  9. LIPITOR [Concomitant]
  10. NAPROXEN [Concomitant]
  11. WARFARIN [Concomitant]

REACTIONS (8)
  - AREFLEXIA [None]
  - CONVULSION [None]
  - CORONARY ARTERY BYPASS [None]
  - DRUG LEVEL DECREASED [None]
  - JOINT SURGERY [None]
  - NEUROPATHY PERIPHERAL [None]
  - SENSORY LOSS [None]
  - SHOULDER OPERATION [None]
